FAERS Safety Report 8118978-1 (Version None)
Quarter: 2012Q1

REPORT INFORMATION
  Report Type: 
  Country: None (occurrence: None)
  Receive Date: 20120207
  Receipt Date: 20120202
  Transmission Date: 20120608
  Serious: Yes (Hospitalization, Other)
  Sender: FDA-Public Use
  Company Number: DE-ROCHE-1007043

PATIENT
  Sex: Male

DRUGS (2)
  1. INTERFERON ALFA [Suspect]
     Indication: MALIGNANT MELANOMA
     Dosage: 3 MIO IU
     Route: 065
  2. INTERFERON ALFA [Suspect]
     Dates: start: 20111001

REACTIONS (2)
  - DYSPNOEA [None]
  - PULMONARY EMBOLISM [None]
